FAERS Safety Report 10136458 (Version 1)
Quarter: 2014Q2

REPORT INFORMATION
  Report Type: Spontaneous
  Country: US (occurrence: US)
  Receive Date: 20140429
  Receipt Date: 20140429
  Transmission Date: 20141212
  Serious: Yes (Hospitalization, Other)
  Sender: FDA-Public Use
  Company Number: US-AMGEN INC.-USASP2014030359

PATIENT
  Age: 47 Year
  Sex: Female

DRUGS (3)
  1. ENBREL [Suspect]
     Indication: PSORIATIC ARTHROPATHY
     Dosage: 50 MG, QWK
     Route: 065
     Dates: start: 20120608, end: 201305
  2. SIMPONI [Suspect]
     Indication: PRODUCT USED FOR UNKNOWN INDICATION
     Dosage: UNK
     Route: 065
     Dates: start: 201305, end: 201309
  3. METHOTREXATE [Concomitant]
     Dosage: 0.6 ML, QWK
     Dates: start: 201305, end: 201309

REACTIONS (11)
  - Vaginal haemorrhage [Recovered/Resolved]
  - Psoriatic arthropathy [Not Recovered/Not Resolved]
  - Motor dysfunction [Not Recovered/Not Resolved]
  - Blood pressure increased [Recovered/Resolved]
  - Headache [Recovered/Resolved]
  - Irritability [Recovered/Resolved]
  - Feeling drunk [Recovered/Resolved]
  - Feeling abnormal [Not Recovered/Not Resolved]
  - Scleritis [Not Recovered/Not Resolved]
  - Viral infection [Recovered/Resolved]
  - Sinusitis [Not Recovered/Not Resolved]
